FAERS Safety Report 13837543 (Version 2)
Quarter: 2017Q3

REPORT INFORMATION
  Report Type: Spontaneous
  Country: JP (occurrence: JP)
  Receive Date: 20170804
  Receipt Date: 20170829
  Transmission Date: 20171127
  Serious: Yes (Death, Hospitalization)
  Sender: FDA-Public Use
  Company Number: JP-ROCHE-1973514

PATIENT
  Age: 76 Year
  Sex: Male
  Weight: 157 kg

DRUGS (8)
  1. BAYASPIRIN [Concomitant]
     Active Substance: ASPIRIN
     Indication: MYOCARDIAL INFARCTION
     Route: 048
     Dates: start: 20160524, end: 20170315
  2. PREDONINE [Concomitant]
     Active Substance: PREDNISOLONE
     Indication: MICROSCOPIC POLYANGIITIS
     Route: 048
     Dates: start: 20170104, end: 20170305
  3. AZATHIOPRINE. [Suspect]
     Active Substance: AZATHIOPRINE
     Indication: MICROSCOPIC POLYANGIITIS
     Route: 048
  4. METHOTREXATE. [Suspect]
     Active Substance: METHOTREXATE
     Dosage: TAPERED TO 6 MG WEEKLY
     Route: 048
     Dates: start: 20170223, end: 20170303
  5. RITUXAN [Suspect]
     Active Substance: RITUXIMAB
     Indication: MICROSCOPIC POLYANGIITIS
     Route: 041
     Dates: start: 20170216, end: 20170216
  6. METHOTREXATE. [Suspect]
     Active Substance: METHOTREXATE
     Indication: MICROSCOPIC POLYANGIITIS
     Dosage: TAPERED TO 6 MG WEEKLY
     Route: 048
     Dates: start: 20161018, end: 20170222
  7. METHOTREXATE. [Suspect]
     Active Substance: METHOTREXATE
     Dosage: TAPERED TO 6 MG WEEKLY
     Route: 048
     Dates: start: 20170303, end: 20170310
  8. CRESTOR [Concomitant]
     Active Substance: ROSUVASTATIN CALCIUM
     Indication: DYSLIPIDAEMIA
     Route: 048
     Dates: start: 20160823, end: 20170315

REACTIONS (3)
  - Lactic acidosis [Fatal]
  - Pneumonia [Recovering/Resolving]
  - Hepatic function abnormal [Fatal]

NARRATIVE: CASE EVENT DATE: 20170221
